FAERS Safety Report 5270584-2 (Version None)
Quarter: 2007Q1

REPORT INFORMATION
  Report Type: 
  Country: None (occurrence: None)
  Receive Date: 20070315
  Receipt Date: 20070302
  Transmission Date: 20070707
  Serious: Yes (Hospitalization)
  Sender: FDA-Public Use
  Company Number: MC200700227

PATIENT
  Age: 51 Year
  Sex: Male

DRUGS (1)
  1. ANGIOMAX [Suspect]
     Indication: CORONARY ARTERY BYPASS
     Dates: start: 20070208

REACTIONS (2)
  - CHEST PAIN [None]
  - GRAFT INFECTION [None]
